FAERS Safety Report 20870817 (Version 3)
Quarter: 2022Q3

REPORT INFORMATION
  Report Type: Other
  Country: FR (occurrence: None)
  Receive Date: 20220525
  Receipt Date: 20220826
  Transmission Date: 20221027
  Serious: Yes (Hospitalization, Other)
  Sender: FDA-Public Use
  Company Number: FR-ROCHE-3100115

PATIENT
  Age: 73 Year
  Sex: Female
  Weight: 44 kg

DRUGS (7)
  1. PRALSETINIB [Suspect]
     Active Substance: PRALSETINIB
     Indication: Non-small cell lung cancer
     Dosage: 4 TAB
     Route: 048
     Dates: start: 20210701
  2. ESCITALOPRAM [Concomitant]
     Active Substance: ESCITALOPRAM OXALATE
  3. LANSOPRAZOLE [Concomitant]
     Active Substance: LANSOPRAZOLE
  4. LOVENOX [Concomitant]
     Active Substance: ENOXAPARIN SODIUM
  5. ZOPICLONE [Concomitant]
     Active Substance: ZOPICLONE
  6. ESCITALOPRAM OXALATE [Concomitant]
     Active Substance: ESCITALOPRAM OXALATE
     Route: 048
  7. COVERAM [Concomitant]
     Active Substance: AMLODIPINE\PERINDOPRIL
     Route: 048

REACTIONS (3)
  - Pleural effusion [Unknown]
  - Interstitial lung disease [Unknown]
  - Dyspnoea exertional [Not Recovered/Not Resolved]

NARRATIVE: CASE EVENT DATE: 20220101
